FAERS Safety Report 14103011 (Version 1)
Quarter: 2017Q4

REPORT INFORMATION
  Report Type: Report from Study
  Country: US (occurrence: US)
  Receive Date: 20171018
  Receipt Date: 20171018
  Transmission Date: 20180321
  Serious: Yes (Other)
  Sender: FDA-Public Use
  Company Number: US-JNJFOC-20170811171

PATIENT
  Age: 71 Year
  Sex: Male

DRUGS (5)
  1. IMBRUVICA [Suspect]
     Active Substance: IBRUTINIB
     Indication: CHRONIC LYMPHOCYTIC LEUKAEMIA
     Route: 048
     Dates: start: 20170630
  2. ALLOPURINOL. [Concomitant]
     Active Substance: ALLOPURINOL
  3. TAMSULOSIN HCL [Concomitant]
     Active Substance: TAMSULOSIN
  4. LOVENOX [Suspect]
     Active Substance: ENOXAPARIN SODIUM
     Indication: PRODUCT USED FOR UNKNOWN INDICATION
     Dosage: 30MG/0.3ML
     Route: 058
  5. SIMVASTATIN. [Concomitant]
     Active Substance: SIMVASTATIN

REACTIONS (3)
  - Thrombosis [Recovered/Resolved]
  - Contusion [Unknown]
  - Drug interaction [Unknown]

NARRATIVE: CASE EVENT DATE: 20170805
